FAERS Safety Report 14640467 (Version 2)
Quarter: 2018Q1

REPORT INFORMATION
  Report Type: Spontaneous
  Country: US (occurrence: US)
  Receive Date: 20180315
  Receipt Date: 20180330
  Transmission Date: 20180509
  Serious: No
  Sender: FDA-Public Use
  Company Number: US-PFIZER INC-2018068977

PATIENT
  Age: 65 Year
  Sex: Female

DRUGS (5)
  1. LATANOPROST. [Suspect]
     Active Substance: LATANOPROST
     Indication: GLAUCOMA
     Dosage: UNK UNK, DAILY (BOTH EYES EVERY NIGHT)
     Route: 047
  2. LATANOPROST. [Suspect]
     Active Substance: LATANOPROST
     Dosage: UNK
  3. LATANOPROST. [Suspect]
     Active Substance: LATANOPROST
     Dosage: 40 MG, 1X/DAY
     Route: 047
     Dates: start: 2014
  4. LATANOPROST. [Suspect]
     Active Substance: LATANOPROST
     Dosage: UNK
  5. LATANOPROST. [Suspect]
     Active Substance: LATANOPROST
     Dosage: 40 MG, 1X/DAY
     Route: 047
     Dates: start: 2014

REACTIONS (5)
  - Product quality issue [Unknown]
  - Accidental exposure to product [Not Recovered/Not Resolved]
  - Product container issue [Unknown]
  - Tooth erosion [Not Recovered/Not Resolved]
  - Dental caries [Not Recovered/Not Resolved]

NARRATIVE: CASE EVENT DATE: 2014
